FAERS Safety Report 11764728 (Version 1)
Quarter: 2015Q4

REPORT INFORMATION
  Report Type: Spontaneous
  Country: US (occurrence: US)
  Receive Date: 20151120
  Receipt Date: 20151120
  Transmission Date: 20160304
  Serious: No
  Sender: FDA-Public Use
  Company Number: US-ELI_LILLY_AND_COMPANY-US201306006785

PATIENT
  Sex: Female

DRUGS (1)
  1. FORTEO [Suspect]
     Active Substance: TERIPARATIDE
     Indication: OSTEOPOROSIS
     Dosage: UNK UNK, QD

REACTIONS (6)
  - Depression [Unknown]
  - Abdominal pain [Unknown]
  - Rhinitis [Unknown]
  - Heart rate increased [Unknown]
  - Nausea [Unknown]
  - Headache [Unknown]
